FAERS Safety Report 10234802 (Version 1)
Quarter: 2014Q1

REPORT INFORMATION
  Report Type: Spontaneous
  Country: US (occurrence: None)
  Receive Date: 20140306
  Receipt Date: 20140306
  Transmission Date: 20141002
  Serious: Yes (Other)
  Sender: FDA-Public Use
  Company Number: 163-21880-13050144

PATIENT
  Age: 61 Year
  Sex: Male

DRUGS (3)
  1. REVLIMID [Suspect]
     Indication: MYELOFIBROSIS
     Route: 048
     Dates: start: 20130328
  2. PREDNISONE (PREDNISONE) (UNKNOWN) [Concomitant]
  3. LASIX (FUROSEMIDE) (UNKNOWN) [Concomitant]

REACTIONS (9)
  - Full blood count decreased [None]
  - Blood glucose decreased [None]
  - Dysgeusia [None]
  - Fatigue [None]
  - Constipation [None]
  - Vomiting [None]
  - Hyperhidrosis [None]
  - Dehydration [None]
  - Nausea [None]
